FAERS Safety Report 10642260 (Version 1)
Quarter: 2014Q4

REPORT INFORMATION
  Report Type: Spontaneous
  Country: IT (occurrence: None)
  Receive Date: 20141208
  Receipt Date: 20141208
  Transmission Date: 20150529
  Serious: Yes (Hospitalization)
  Sender: FDA-Public Use
  Company Number: 2014120022

PATIENT
  Age: 32 Year
  Sex: Female

DRUGS (2)
  1. MESALAZINE (MESALAZINE) [Suspect]
     Active Substance: MESALAMINE
     Indication: CROHN^S DISEASE
     Dates: start: 201111, end: 201201
  2. PREDNISONE (PREDNISONE) [Concomitant]
     Active Substance: PREDNISONE

REACTIONS (7)
  - Pain in extremity [None]
  - Mucosal haemorrhage [None]
  - Thrombocytopenia [None]
  - Immune thrombocytopenic purpura [None]
  - Fatigue [None]
  - Pyrexia [None]
  - Skin haemorrhage [None]

NARRATIVE: CASE EVENT DATE: 201201
